FAERS Safety Report 9817810 (Version 1)
Quarter: 2013Q4

REPORT INFORMATION
  Report Type: Spontaneous
  Country: US (occurrence: None)
  Receive Date: 20131223
  Receipt Date: 20131223
  Transmission Date: 20140711
  Serious: No
  Sender: FDA-Public Use
  Company Number: 218849

PATIENT
  Age: 53 Year
  Sex: Male

DRUGS (1)
  1. PICATO [Suspect]
     Indication: ACTINIC KERATOSIS
     Dates: start: 20120905, end: 20120906

REACTIONS (4)
  - Application site erythema [None]
  - Application site discharge [None]
  - Application site reaction [None]
  - Drug administered at inappropriate site [None]
